FAERS Safety Report 9319682 (Version 1)
Quarter: 2013Q1

REPORT INFORMATION
  Report Type: Spontaneous
  Country: IT (occurrence: None)
  Receive Date: 20121210
  Receipt Date: 20121210
  Transmission Date: 20140127
  Serious: Yes (Other)
  Sender: FDA-Public Use
  Company Number: IT-2012-3836

PATIENT
  Age: 37 Year
  Sex: Female
  Weight: 60 kg

DRUGS (2)
  1. NAVELBINE (VINORELBINE TARTRATE) INFUSION [Suspect]
     Indication: BREAST CANCER METASTATIC
     Dosage: PER CHEMO REGIMEN
     Route: 042
     Dates: start: 20120705, end: 20120920
  2. TAXOTERE (DOCETAXEL) [Concomitant]

REACTIONS (1)
  - Infusion site phlebitis [None]
